FAERS Safety Report 9849214 (Version 3)
Quarter: 2014Q1

REPORT INFORMATION
  Report Type: Report from Study
  Country: AT (occurrence: AT)
  Receive Date: 20140128
  Receipt Date: 20140207
  Transmission Date: 20141002
  Serious: Yes (Hospitalization, Other)
  Sender: FDA-Public Use
  Company Number: PHHY2014AT007484

PATIENT
  Age: 67 Year
  Sex: Male
  Weight: 102 kg

DRUGS (35)
  1. MYCOPHENOLIC ACID [Suspect]
     Indication: IMMUNOSUPPRESSION
     Dosage: 720 MG, DAILY
     Dates: start: 20121106
  2. MYCOPHENOLIC ACID [Suspect]
     Dosage: 1440 MG, DAILY
     Dates: start: 20121107
  3. MYCOPHENOLIC ACID [Suspect]
     Dosage: 720 MG, DAILY
     Dates: start: 20121130
  4. TACROLIMUS [Concomitant]
     Indication: IMMUNOSUPPRESSION
     Dosage: 1.5 MG
  5. TACROLIMUS [Concomitant]
     Dosage: 4 MG
     Dates: start: 20121130
  6. TACROLIMUS [Concomitant]
     Dosage: 3.5 MG
     Dates: start: 20121213
  7. CELLCEPT [Concomitant]
     Indication: IMMUNOSUPPRESSION
     Dosage: 1000 MG, LAST DOSE
  8. PREDNISOLON [Concomitant]
     Indication: IMMUNOSUPPRESSION
     Dosage: 15 MG
  9. PREDNISOLON [Concomitant]
     Dosage: 10 MG, UNK
     Dates: start: 20121130
  10. PREDNISOLON [Concomitant]
     Dosage: 5 MG, UNK
     Dates: start: 20130208
  11. INH [Concomitant]
     Indication: TUBERCULOSIS
     Dosage: 200 MG
  12. ZYVOXID [Concomitant]
     Indication: INFECTION
     Dosage: 1800 MG
     Route: 042
  13. MEROPENEM [Concomitant]
     Indication: INFECTION
     Dosage: 1000 MG
     Route: 042
  14. VALCYTE [Concomitant]
     Dosage: 450 MG
  15. LOVENOX [Concomitant]
     Indication: THROMBOSIS PROPHYLAXIS
     Dosage: 80 MG
     Dates: end: 20121130
  16. LOVENOX [Concomitant]
     Dosage: 40 UNK, UNK
     Dates: start: 20130208
  17. NOVORAPID [Concomitant]
     Indication: TYPE 2 DIABETES MELLITUS
     Dosage: 10 IU
     Dates: end: 20121130
  18. HUMALOG MIX 50/50 PEN [Concomitant]
     Indication: TYPE 2 DIABETES MELLITUS
     Dosage: UNK UKN, PRN
     Dates: end: 20121130
  19. PANTOLOC//PANTOPRAZOLE SODIUM SESQUIHYDRATE [Concomitant]
     Indication: GASTRIC DISORDER
     Dosage: 80 MG, ON FIRST VISIT
     Dates: end: 20121130
  20. PANTOLOC//PANTOPRAZOLE SODIUM SESQUIHYDRATE [Concomitant]
     Indication: PROPHYLAXIS AGAINST GASTROINTESTINAL ULCER
     Dosage: 40 MG, FROM VISIT 4
     Dates: start: 20130430
  21. AEROMUC [Concomitant]
     Indication: BRONCHOPULMONARY DISEASE
     Dosage: 600 MG, UNK
     Dates: end: 20121130
  22. NEUROBION FORTE [Concomitant]
     Indication: VITAMIN B COMPLEX DEFICIENCY
     Dosage: 1 DF
  23. LENDORM [Concomitant]
     Indication: INSOMNIA
     Dosage: 0.25 MG
  24. FLEXBUMIN [Concomitant]
     Indication: FLUID REPLACEMENT
     Dosage: 200 ML
     Dates: end: 20121130
  25. PASSEDAN [Concomitant]
     Indication: INITIAL INSOMNIA
     Dosage: 15 DRP
     Dates: end: 20121130
  26. THROMBO ASS [Concomitant]
     Indication: THROMBOSIS PROPHYLAXIS
     Dosage: 100 MG
     Dates: start: 20121130
  27. TORASEMID [Concomitant]
     Indication: HYPERTENSION
     Dosage: 10 MG
     Dates: start: 20121130
  28. TORASEMID [Concomitant]
     Indication: OEDEMA
     Dosage: 20 MG
     Dates: start: 20130430
  29. AMLODIPIN//AMLODIPINE [Concomitant]
     Indication: HYPERTENSION
     Dosage: 10 MG
     Dates: start: 20121130, end: 20130208
  30. NOVALGIN                                /SCH/ [Concomitant]
     Indication: PAIN
     Dosage: 30 G, PRN
     Dates: start: 20121130, end: 20130208
  31. MEXALEN [Concomitant]
     Indication: PAIN
     Dosage: 2X1 ON DEMAND
     Dates: start: 20121130, end: 20130208
  32. SELOKEN [Concomitant]
     Indication: HYPERTENSION
     Dosage: 47.5 MG, UNK
     Dates: start: 20130208
  33. TRAMAL [Concomitant]
     Indication: PAIN
     Dosage: 100 MG, PRN
     Dates: start: 20130208
  34. SORTIS [Concomitant]
     Indication: HYPERCHOLESTEROLAEMIA
     Dosage: 40 MG, UNK
     Dates: start: 20130430
  35. ZANIDIP [Concomitant]
     Indication: HYPERTENSION
     Dosage: 20 MG, UNK
     Dates: start: 20130719

REACTIONS (17)
  - General physical health deterioration [Recovered/Resolved]
  - Inflammatory marker increased [Unknown]
  - Wound dehiscence [Unknown]
  - Fall [Unknown]
  - Rib fracture [Unknown]
  - Pathogen resistance [Unknown]
  - Blood glucose increased [Unknown]
  - Chlamydial infection [Unknown]
  - BK virus infection [Unknown]
  - Epstein-Barr virus infection [Unknown]
  - Varicella virus test positive [Unknown]
  - Pseudomonas infection [Unknown]
  - Anaemia [Recovered/Resolved]
  - Blood pressure increased [Unknown]
  - Diarrhoea [Unknown]
  - Asthenia [Unknown]
  - Fatigue [Unknown]
